FAERS Safety Report 8053028-7 (Version None)
Quarter: 2012Q1

REPORT INFORMATION
  Report Type: 
  Country: None (occurrence: None)
  Receive Date: 20120118
  Receipt Date: 20120112
  Transmission Date: 20120608
  Serious: No
  Sender: FDA-Public Use
  Company Number: US-B.I. PHARMACEUTICALS,INC./RIDGEFIELD-2012-BP-00726BP

PATIENT
  Sex: Female

DRUGS (16)
  1. CYANOCOBALAMIN [Concomitant]
     Indication: DIABETIC NEUROPATHY
     Route: 048
  2. VITAMIN D [Concomitant]
     Indication: SUPPLEMENTATION THERAPY
     Route: 048
  3. HUMALOG [Concomitant]
     Indication: DIABETES MELLITUS
     Route: 058
  4. METOPROLOL TARTRATE [Concomitant]
     Indication: HYPERTENSION
  5. ASPIRIN [Concomitant]
     Indication: SUPPLEMENTATION THERAPY
     Dosage: 81 MG
     Route: 048
  6. SPIRIVA [Suspect]
     Indication: CHRONIC OBSTRUCTIVE PULMONARY DISEASE
     Dosage: 18 MCG
     Route: 048
     Dates: start: 20110701
  7. NPH INSULIN [Concomitant]
     Indication: DIABETES MELLITUS
     Route: 058
  8. NEXIUM [Concomitant]
     Indication: GASTROOESOPHAGEAL REFLUX DISEASE
     Route: 048
  9. ISOSORBIDE DINITRATE [Concomitant]
     Indication: CARDIAC FAILURE CONGESTIVE
     Route: 048
  10. FUROSEMIDE [Concomitant]
     Indication: FLUID RETENTION
     Route: 048
  11. COUMADIN [Concomitant]
     Indication: ANTIPHOSPHOLIPID SYNDROME
     Route: 048
  12. CRESTOR [Concomitant]
     Indication: BLOOD CHOLESTEROL INCREASED
     Route: 048
  13. NEURONTIN [Concomitant]
     Indication: DIABETIC NEUROPATHY
     Route: 048
  14. ALBUTEROL [Concomitant]
     Indication: CHRONIC OBSTRUCTIVE PULMONARY DISEASE
     Route: 055
  15. COZAAR [Concomitant]
     Indication: HYPERTENSION
     Route: 048
  16. SPIRONOLACTONE [Concomitant]
     Indication: FLUID RETENTION

REACTIONS (1)
  - DYSPNOEA [None]
